FAERS Safety Report 4577437-3 (Version None)
Quarter: 2005Q1

REPORT INFORMATION
  Report Type: 
  Country: None (occurrence: None)
  Receive Date: 20050208
  Receipt Date: 20050125
  Transmission Date: 20050727
  Serious: Yes (Life-Threatening, Hospitalization)
  Sender: FDA-Public Use
  Company Number: 2005-DE-00293ZA

PATIENT
  Age: 17 Day
  Sex: Male

DRUGS (1)
  1. VIRAMUNE [Suspect]
     Indication: HIV INFECTION
     Dosage: 50 MG/5ML (SEE TEXT) PO
     Route: 048
     Dates: start: 20050103, end: 20050120

REACTIONS (1)
  - NECROTISING ENTEROCOLITIS NEONATAL [None]
